FAERS Safety Report 7701754-9 (Version None)
Quarter: 2011Q3

REPORT INFORMATION
  Report Type: 
  Country: None (occurrence: None)
  Receive Date: 20110822
  Receipt Date: 20110812
  Transmission Date: 20111222
  Serious: Yes (Hospitalization, Other)
  Sender: FDA-Public Use
  Company Number: US-BAYER-2011-023289

PATIENT
  Age: 38 Year
  Sex: Female
  Weight: 75 kg

DRUGS (4)
  1. YASMIN [Suspect]
     Indication: MENSTRUATION IRREGULAR
     Dosage: UNK
     Dates: start: 20040601, end: 20040901
  2. CIPROFLOXACIN [Concomitant]
  3. PREDNISONE [Concomitant]
     Indication: AUTOIMMUNE DISORDER
  4. PREDNISONE [Concomitant]
     Indication: NEUTROPENIA

REACTIONS (4)
  - PULMONARY EMBOLISM [None]
  - DEPRESSION [None]
  - INJURY [None]
  - MENTAL DISORDER [None]
